FAERS Safety Report 16905555 (Version 2)
Quarter: 2019Q4

REPORT INFORMATION
  Report Type: Spontaneous
  Country: MX (occurrence: MX)
  Receive Date: 20191010
  Receipt Date: 20191023
  Transmission Date: 20200122
  Serious: Yes (Hospitalization, Other)
  Sender: FDA-Public Use
  Company Number: MX-BIOMARINAP-MX-2019-126163

PATIENT

DRUGS (2)
  1. ALDURAZYME [Suspect]
     Active Substance: LARONIDASE
     Dosage: 3 DOSAGE FORM, QW
     Route: 041
     Dates: start: 20190927
  2. ALDURAZYME [Suspect]
     Active Substance: LARONIDASE
     Indication: MUCOPOLYSACCHARIDOSIS I
     Dosage: 3 DOSAGE FORM, QW
     Route: 041

REACTIONS (3)
  - Apnoea [Recovering/Resolving]
  - Respiratory failure [Not Recovered/Not Resolved]
  - Cyanosis [Recovering/Resolving]

NARRATIVE: CASE EVENT DATE: 20190926
